FAERS Safety Report 9540658 (Version 5)
Quarter: 2014Q4

REPORT INFORMATION
  Report Type: Report from Study
  Country: GB (occurrence: GB)
  Receive Date: 20130920
  Receipt Date: 20141014
  Transmission Date: 20150529
  Serious: Yes (Other)
  Sender: FDA-Public Use
  Company Number: GB-VERTEX PHARMACEUTICALS INC-2013-009739

PATIENT
  Age: 59 Year
  Sex: Male

DRUGS (3)
  1. TELAPREVIR [Suspect]
     Active Substance: TELAPREVIR
     Indication: HEPATITIS C
     Dosage: 1125 MG, BID
     Route: 048
     Dates: start: 20130826, end: 201407
  2. RIBAVIRIN. [Suspect]
     Active Substance: RIBAVIRIN
     Indication: HEPATITIS C
     Dosage: UNK, BID
     Route: 048
     Dates: start: 20130826, end: 201407
  3. PEGYLATED INTERFERON ALPHA NOS [Suspect]
     Active Substance: PEGINTERFERON ALFA-2A OR PEGINTERFERON ALFA-2B
     Indication: HEPATITIS C
     Dosage: UNK UNK, QW
     Route: 058
     Dates: start: 20130826, end: 201407

REACTIONS (25)
  - Respiratory disorder [Not Recovered/Not Resolved]
  - Hair growth abnormal [Not Recovered/Not Resolved]
  - Skin burning sensation [Unknown]
  - Lower respiratory tract infection [Not Recovered/Not Resolved]
  - Feeling hot [Unknown]
  - White blood cell count decreased [Not Recovered/Not Resolved]
  - Anorectal discomfort [Unknown]
  - Burning sensation [Not Recovered/Not Resolved]
  - Growth of eyelashes [Unknown]
  - Cardiac disorder [Not Recovered/Not Resolved]
  - Paraesthesia [Unknown]
  - Nausea [Not Recovered/Not Resolved]
  - Lung disorder [Unknown]
  - Coronary artery stenosis [Unknown]
  - Pruritus [Not Recovered/Not Resolved]
  - Alopecia [Not Recovered/Not Resolved]
  - Chest discomfort [Unknown]
  - Fungal skin infection [Recovered/Resolved]
  - Fatigue [Not Recovered/Not Resolved]
  - Platelet count decreased [Not Recovered/Not Resolved]
  - Angina pectoris [Unknown]
  - Feeling cold [Not Recovered/Not Resolved]
  - Lethargy [Unknown]
  - Anaemia [Not Recovered/Not Resolved]
  - Haemorrhoids [Not Recovered/Not Resolved]

NARRATIVE: CASE EVENT DATE: 20130826
